FAERS Safety Report 18453436 (Version 3)
Quarter: 2021Q1

REPORT INFORMATION
  Report Type: Spontaneous
  Country: US (occurrence: US)
  Receive Date: 20201102
  Receipt Date: 20210104
  Transmission Date: 20210419
  Serious: Yes (Other)
  Sender: FDA-Public Use
  Company Number: US-PFIZER INC-2020419396

PATIENT
  Age: 49 Year
  Sex: Female

DRUGS (5)
  1. PHENOBARBITAL. [Concomitant]
     Active Substance: PHENOBARBITAL
     Indication: SEIZURE
     Dosage: 64.8 MG, EVERY 4 HRS (64.8MG EVERY 4 HOURS)
     Dates: start: 1997
  2. LASIX [Concomitant]
     Active Substance: FUROSEMIDE
     Dosage: UNK
  3. LIPITOR [Suspect]
     Active Substance: ATORVASTATIN CALCIUM
     Indication: VEIN DISORDER
     Dosage: 80 MG, 1X/DAY (2?40 MG TABLETS ONCE EVERY NIGHT/40MG TWO BY MOUTH AT NIGHT)
     Route: 048
     Dates: start: 2003, end: 202001
  4. PLAVIX [Concomitant]
     Active Substance: CLOPIDOGREL BISULFATE
     Indication: PLATELET DISORDER
     Dosage: 75 MG, DAILY
     Dates: start: 2005
  5. NEURONTIN [Concomitant]
     Active Substance: GABAPENTIN
     Indication: SEIZURE
     Dosage: 300 MG, EVERY 4 HRS (300MG EVERY 4 HOURS)
     Dates: start: 1997

REACTIONS (13)
  - Neoplasm malignant [Unknown]
  - Off label use [Unknown]
  - Coma [Unknown]
  - Haemorrhage [Unknown]
  - Monoplegia [Unknown]
  - Intervertebral disc disorder [Unknown]
  - Colon cancer [Unknown]
  - Malignant neoplasm of spinal cord [Unknown]
  - Transient ischaemic attack [Unknown]
  - Fluid retention [Unknown]
  - Drug interaction [Unknown]
  - Gastric cancer [Unknown]
  - Cerebral haemorrhage [Unknown]

NARRATIVE: CASE EVENT DATE: 2003
